FAERS Safety Report 6983161-X (Version None)
Quarter: 2010Q3

REPORT INFORMATION
  Report Type: 
  Country: None (occurrence: None)
  Receive Date: 20100914
  Receipt Date: 20100730
  Transmission Date: 20110219
  Serious: Yes (Other)
  Sender: FDA-Public Use
  Company Number: US-PFIZER INC-2010076757

PATIENT
  Sex: Female
  Weight: 79.365 kg

DRUGS (5)
  1. LYRICA [Suspect]
     Indication: FIBROMYALGIA
     Dosage: 50 MG, 2X/DAY
     Route: 048
     Dates: end: 20100601
  2. LYRICA [Suspect]
     Indication: NERVE INJURY
  3. NORCO [Concomitant]
     Dosage: UNK
  4. KLONOPIN [Concomitant]
     Dosage: UNK
  5. ELAVIL [Concomitant]
     Dosage: UNK

REACTIONS (3)
  - NAUSEA [None]
  - PAIN [None]
  - PRURITUS [None]
